FAERS Safety Report 8573511-5 (Version None)
Quarter: 2012Q2

REPORT INFORMATION
  Report Type: 
  Country: None (occurrence: None)
  Receive Date: 20120423
  Receipt Date: 20090716
  Transmission Date: 20120825
  Serious: Yes (Other)
  Sender: FDA-Public Use
  Company Number: PHEH2006US03670

PATIENT
  Age: 84 Year
  Sex: Male
  Weight: 93.3 kg

DRUGS (17)
  1. EXJADE [Suspect]
     Indication: IRON OVERLOAD
     Dosage: 500 MG, QD4SDO;1000 MG, QD; 1250 MG, QD, ORAL; 1500 MG, QD; 1750 MG, QD, ORAL; 500 MG, QD4SDO, ORAL;
     Route: 048
  2. EXJADE [Suspect]
     Indication: MYELODYSPLASTIC SYNDROME
     Dosage: 500 MG, QD4SDO;1000 MG, QD; 1250 MG, QD, ORAL; 1500 MG, QD; 1750 MG, QD, ORAL; 500 MG, QD4SDO, ORAL;
     Route: 048
  3. EXJADE [Suspect]
     Indication: IRON OVERLOAD
     Dosage: 500 MG, QD4SDO;1000 MG, QD; 1250 MG, QD, ORAL; 1500 MG, QD; 1750 MG, QD, ORAL; 500 MG, QD4SDO, ORAL;
     Route: 048
  4. EXJADE [Suspect]
     Indication: MYELODYSPLASTIC SYNDROME
     Dosage: 500 MG, QD4SDO;1000 MG, QD; 1250 MG, QD, ORAL; 1500 MG, QD; 1750 MG, QD, ORAL; 500 MG, QD4SDO, ORAL;
     Route: 048
  5. EXJADE [Suspect]
     Indication: IRON OVERLOAD
     Dosage: 500 MG, QD4SDO;1000 MG, QD; 1250 MG, QD, ORAL; 1500 MG, QD; 1750 MG, QD, ORAL; 500 MG, QD4SDO, ORAL;
     Route: 048
     Dates: start: 20060310
  6. EXJADE [Suspect]
     Indication: MYELODYSPLASTIC SYNDROME
     Dosage: 500 MG, QD4SDO;1000 MG, QD; 1250 MG, QD, ORAL; 1500 MG, QD; 1750 MG, QD, ORAL; 500 MG, QD4SDO, ORAL;
     Route: 048
     Dates: start: 20060310
  7. EXJADE [Suspect]
     Indication: IRON OVERLOAD
     Dosage: 500 MG, QD4SDO;1000 MG, QD; 1250 MG, QD, ORAL; 1500 MG, QD; 1750 MG, QD, ORAL; 500 MG, QD4SDO, ORAL;
     Route: 048
  8. EXJADE [Suspect]
     Indication: MYELODYSPLASTIC SYNDROME
     Dosage: 500 MG, QD4SDO;1000 MG, QD; 1250 MG, QD, ORAL; 1500 MG, QD; 1750 MG, QD, ORAL; 500 MG, QD4SDO, ORAL;
     Route: 048
  9. EXJADE [Suspect]
     Indication: IRON OVERLOAD
     Dosage: 500 MG, QD4SDO;1000 MG, QD; 1250 MG, QD, ORAL; 1500 MG, QD; 1750 MG, QD, ORAL; 500 MG, QD4SDO, ORAL;
     Route: 048
  10. EXJADE [Suspect]
     Indication: MYELODYSPLASTIC SYNDROME
     Dosage: 500 MG, QD4SDO;1000 MG, QD; 1250 MG, QD, ORAL; 1500 MG, QD; 1750 MG, QD, ORAL; 500 MG, QD4SDO, ORAL;
     Route: 048
  11. EXJADE [Suspect]
     Indication: IRON OVERLOAD
     Dosage: 500 MG, QD4SDO;1000 MG, QD; 1250 MG, QD, ORAL; 1500 MG, QD; 1750 MG, QD, ORAL; 500 MG, QD4SDO, ORAL;
     Route: 048
  12. EXJADE [Suspect]
     Indication: MYELODYSPLASTIC SYNDROME
     Dosage: 500 MG, QD4SDO;1000 MG, QD; 1250 MG, QD, ORAL; 1500 MG, QD; 1750 MG, QD, ORAL; 500 MG, QD4SDO, ORAL;
     Route: 048
  13. ADVART [Concomitant]
  14. BETOPIC (BETAMETHASONE) [Concomitant]
  15. FLOMAX [Concomitant]
  16. VIDAZA [Concomitant]
  17. COLACE (DOCUSATE SODIUM) [Concomitant]

REACTIONS (4)
  - NAUSEA [None]
  - RASH GENERALISED [None]
  - LIVER DISORDER [None]
  - BODY TEMPERATURE INCREASED [None]
